FAERS Safety Report 6393040-7 (Version None)
Quarter: 2009Q4

REPORT INFORMATION
  Report Type: 
  Country: None (occurrence: None)
  Receive Date: 20091008
  Receipt Date: 20090928
  Transmission Date: 20100525
  Serious: Yes (Other)
  Sender: FDA-Public Use
  Company Number: NO-RANBAXY-2009RR-28308

PATIENT
  Age: 40 Day

DRUGS (1)
  1. TOPIRAMATE [Suspect]
     Dosage: 50 MG, UNK
     Route: 063

REACTIONS (1)
  - DIARRHOEA [None]
